FAERS Safety Report 7546581-0 (Version None)
Quarter: 2011Q2

REPORT INFORMATION
  Report Type: 
  Country: None (occurrence: None)
  Receive Date: 20110607
  Receipt Date: 20110523
  Transmission Date: 20111010
  Serious: Yes (Other)
  Sender: FDA-Public Use
  Company Number: 2011MA006336

PATIENT
  Age: 33 Year
  Sex: Female

DRUGS (2)
  1. RISPERIDONE [Concomitant]
  2. HALOPERIDOL LACTATE [Suspect]
     Indication: AGGRESSION
     Dosage: 5 MG;BID

REACTIONS (5)
  - PLEUROTHOTONUS [None]
  - DYSTONIA [None]
  - AGGRESSION [None]
  - GAIT DISTURBANCE [None]
  - BACK PAIN [None]
